FAERS Safety Report 7877089-0 (Version None)
Quarter: 2011Q4

REPORT INFORMATION
  Report Type: 
  Country: None (occurrence: None)
  Receive Date: 20111031
  Receipt Date: 20111007
  Transmission Date: 20120403
  Serious: No
  Sender: FDA-Public Use
  Company Number: US-ABBOTT-11P-163-0863298-00

PATIENT
  Sex: Male
  Weight: 85.806 kg

DRUGS (5)
  1. UNKNOWN MEDICATION [Concomitant]
     Indication: BLOOD PRESSURE
  2. CREON [Suspect]
     Dates: start: 20110901
  3. CREON [Suspect]
     Indication: PANCREATIC INSUFFICIENCY
     Dates: start: 20101001, end: 20110901
  4. UNKNOWN MEDICATION [Concomitant]
     Indication: CARDIAC DISORDER
  5. NOVOLOG [Concomitant]
     Indication: DIABETES MELLITUS
     Dosage: SLIDING SCALE 2-13

REACTIONS (1)
  - BLOOD GLUCOSE FLUCTUATION [None]
